FAERS Safety Report 4349375-2 (Version None)
Quarter: 2004Q2

REPORT INFORMATION
  Report Type: 
  Country: None (occurrence: None)
  Receive Date: 20040428
  Receipt Date: 20011115
  Transmission Date: 20050107
  Serious: Yes (Hospitalization)
  Sender: FDA-Public Use
  Company Number: 11545324

PATIENT
  Age: 41 Year
  Sex: Male

DRUGS (6)
  1. BMS224818 [Concomitant]
     Dosage: MORE INTENSIVE ARM
     Route: 042
     Dates: start: 20011020, end: 20011102
  2. MYCOPHENOLATE MOFETIL [Suspect]
     Route: 048
     Dates: start: 20011020, end: 20011116
  3. PREDNISONE [Suspect]
     Route: 048
     Dates: start: 20011022
  4. PANTOPRAZOLE SODIUM [Concomitant]
  5. NIFEDIPINE [Concomitant]
  6. METOPROLOL [Concomitant]

REACTIONS (4)
  - ACQUIRED PYLORIC STENOSIS [None]
  - GASTRIC ULCER [None]
  - POST PROCEDURAL HAEMORRHAGE [None]
  - THROMBOCYTOPENIA [None]
